FAERS Safety Report 19645765 (Version 1)
Quarter: 2021Q3

REPORT INFORMATION
  Report Type: Spontaneous
  Country: US (occurrence: US)
  Receive Date: 20210802
  Receipt Date: 20210802
  Transmission Date: 20211014
  Serious: No
  Sender: FDA-Public Use
  Company Number: US-GLAXOSMITHKLINE-USCH2021049783

PATIENT
  Age: 32 Year
  Sex: Female

DRUGS (1)
  1. ALLI [Suspect]
     Active Substance: ORLISTAT
     Indication: WEIGHT LOSS DIET
     Dosage: UNK
     Dates: start: 20210723, end: 20210729

REACTIONS (2)
  - Faeces discoloured [Unknown]
  - Flatulence [Unknown]

NARRATIVE: CASE EVENT DATE: 20210726
